FAERS Safety Report 11190119 (Version 1)
Quarter: 2015Q2

REPORT INFORMATION
  Report Type: Spontaneous
  Country: US (occurrence: None)
  Receive Date: 20150601
  Receipt Date: 20150601
  Transmission Date: 20150821
  Serious: Yes (Hospitalization, Other)
  Sender: FDA-Public Use
  Company Number: 2013-001943

PATIENT
  Age: 78 Year
  Sex: Female

DRUGS (19)
  1. FUROSEMIDE. [Concomitant]
     Active Substance: FUROSEMIDE
  2. LEVOTHYROXINE [Concomitant]
     Active Substance: LEVOTHYROXINE
  3. ALPRAZOLAM. [Concomitant]
     Active Substance: ALPRAZOLAM
  4. CALCIUM PLUS D3 (CALCIUM, COLECALCIFEROL) [Concomitant]
  5. KLOR-CON (POTASSIUM CHLORIDE) [Concomitant]
  6. RANITIDINE [Concomitant]
     Active Substance: RANITIDINE\RANITIDINE HYDROCHLORIDE
  7. CEFDINIR. [Concomitant]
     Active Substance: CEFDINIR
  8. BISACODYL. [Concomitant]
     Active Substance: BISACODYL
  9. FEXOFENADINE [Concomitant]
     Active Substance: FEXOFENADINE\FEXOFENADINE HYDROCHLORIDE
  10. ZYRTEC [Concomitant]
     Active Substance: CETIRIZINE HYDROCHLORIDE
  11. GLUCOSAMINE [Concomitant]
     Active Substance: GLUCOSAMINE
  12. TRAMADOL [Concomitant]
     Active Substance: TRAMADOL
  13. TRIAMTERENE AND HYDROCHLOROTHIAZIDE [Concomitant]
     Active Substance: HYDROCHLOROTHIAZIDE\TRIAMTERENE
  14. LISINOPRIL. [Concomitant]
     Active Substance: LISINOPRIL
  15. BABY ASPIRIN (ACETYLSALICYLIC ACID) [Concomitant]
     Active Substance: ASPIRIN
  16. ACTONEL [Suspect]
     Active Substance: RISEDRONATE SODIUM
     Indication: OSTEOPOROSIS PROPHYLAXIS
     Route: 048
     Dates: start: 20030919
  17. ACTONEL [Suspect]
     Active Substance: RISEDRONATE SODIUM
     Indication: OSTEOPOROSIS
     Route: 048
     Dates: start: 20030919
  18. SIMVASTATIN. [Concomitant]
     Active Substance: SIMVASTATIN
  19. LORATADINE. [Concomitant]
     Active Substance: LORATADINE

REACTIONS (7)
  - Stress fracture [None]
  - Fracture displacement [None]
  - Low turnover osteopathy [None]
  - Pain [None]
  - Femur fracture [None]
  - Fall [None]
  - Bone disorder [None]

NARRATIVE: CASE EVENT DATE: 20080331
